FAERS Safety Report 5870423-2 (Version None)
Quarter: 2008Q3

REPORT INFORMATION
  Report Type: 
  Country: None (occurrence: None)
  Receive Date: 20080904
  Receipt Date: 20080825
  Transmission Date: 20090109
  Serious: Yes (Hospitalization)
  Sender: FDA-Public Use
  Company Number: US-JNJFOC-20080506205

PATIENT
  Sex: Male
  Weight: 90.72 kg

DRUGS (2)
  1. REMICADE [Suspect]
  2. REMICADE [Suspect]
     Indication: CROHN'S DISEASE

REACTIONS (4)
  - ARTHRITIS INFECTIVE [None]
  - CLOSTRIDIAL INFECTION [None]
  - DRUG INEFFECTIVE [None]
  - INTESTINAL RESECTION [None]
